FAERS Safety Report 4377488-8 (Version None)
Quarter: 2004Q2

REPORT INFORMATION
  Report Type: 
  Country: None (occurrence: None)
  Receive Date: 20040608
  Receipt Date: 20040525
  Transmission Date: 20050107
  Serious: Yes (Death)
  Sender: FDA-Public Use
  Company Number: 2004AP02751

PATIENT
  Age: 85 Year
  Sex: Male

DRUGS (1)
  1. CASODEX [Suspect]
     Indication: PROSTATE CANCER
     Dosage: 80 MG DAILY PO
     Route: 048
     Dates: start: 20031101, end: 20031228

REACTIONS (4)
  - HEPATITIS FULMINANT [None]
  - HEPATOMEGALY [None]
  - METASTASES TO LIVER [None]
  - NEOPLASM PROGRESSION [None]
